FAERS Safety Report 5718889-2 (Version None)
Quarter: 2008Q2

REPORT INFORMATION
  Report Type: 
  Country: None (occurrence: None)
  Receive Date: 20080425
  Receipt Date: 20080416
  Transmission Date: 20081010
  Serious: Yes (Disabling)
  Sender: FDA-Public Use
  Company Number: JP-GILEAD-2008-0016131

PATIENT
  Sex: Male

DRUGS (5)
  1. TRUVADA [Suspect]
     Indication: HIV INFECTION
     Route: 048
     Dates: start: 20071205, end: 20071217
  2. REYATAZ [Concomitant]
     Dates: start: 20071205, end: 20071217
  3. NORVIR [Concomitant]
     Dates: start: 20071205, end: 20071217
  4. BAKTAR [Concomitant]
  5. MAGNESIUM OXIDE [Concomitant]
     Dates: start: 20071212

REACTIONS (3)
  - PYREXIA [None]
  - RASH GENERALISED [None]
  - RENAL DISORDER [None]
